FAERS Safety Report 8809392 (Version 5)
Quarter: 2012Q4

REPORT INFORMATION
  Report Type: Report from Study
  Country: US (occurrence: US)
  Receive Date: 20120926
  Receipt Date: 20121218
  Transmission Date: 20130627
  Serious: Yes (Hospitalization)
  Sender: FDA-Public Use
  Company Number: US-JNJFOC-20120909072

PATIENT
  Age: 13 Year
  Sex: Female
  Weight: 41.4 kg

DRUGS (8)
  1. REMICADE [Suspect]
     Indication: INFLAMMATORY BOWEL DISEASE
     Route: 042
     Dates: start: 20111103
  2. HYDROCODONE ACETAMINOPHEN [Concomitant]
  3. TYLENOL [Concomitant]
     Route: 048
  4. OMEPRAZOLE [Concomitant]
  5. LOPERAMIDE [Concomitant]
  6. AMITRIPTYLINE HCL [Concomitant]
  7. LEVALBUTEROL [Concomitant]
  8. NYSTATIN [Concomitant]

REACTIONS (2)
  - Gastrointestinal stoma complication [Recovered/Resolved]
  - Colitis ulcerative [Recovered/Resolved]
